FAERS Safety Report 22180832 (Version 6)
Quarter: 2023Q2

REPORT INFORMATION
  Report Type: Report from Study
  Country: KR (occurrence: KR)
  Receive Date: 20230406
  Receipt Date: 20230510
  Transmission Date: 20230721
  Serious: Yes (Hospitalization)
  Sender: FDA-Public Use
  Company Number: KR-ASTELLAS-2023US010685

PATIENT
  Age: 78 Year
  Sex: Male
  Weight: 54.1 kg

DRUGS (14)
  1. ENFORTUMAB VEDOTIN [Suspect]
     Active Substance: ENFORTUMAB VEDOTIN
     Indication: Bladder cancer
     Dosage: 1.25 MG/KG, CYCLIC (ON DAY 1 AND 8 Q3W FOR 4 CYCLES)
     Route: 042
     Dates: start: 20230208, end: 20230315
  2. PEMBROLIZUMAB [Suspect]
     Active Substance: PEMBROLIZUMAB
     Indication: Bladder cancer
     Dosage: 200 MG, EVERY 3 WEEKS (FOR 4 CYCLES)
     Route: 042
     Dates: start: 20230208, end: 20230308
  3. TAMSULOSIN [Concomitant]
     Active Substance: TAMSULOSIN
     Indication: Product used for unknown indication
     Dosage: 0.2 MG, UNKNOWN FREQ.
     Route: 065
     Dates: start: 20230208, end: 20230326
  4. MIRABEGRON [Concomitant]
     Active Substance: MIRABEGRON
     Indication: Product used for unknown indication
     Route: 065
     Dates: start: 20230208, end: 20230326
  5. MEGACE F [Concomitant]
     Indication: Product used for unknown indication
     Route: 048
     Dates: start: 20230215, end: 20230315
  6. LACTICARE ZEMAGIS [Concomitant]
     Indication: Product used for unknown indication
     Dosage: UNK UNK, UNKNOWN FREQ.
     Route: 065
     Dates: start: 20230228, end: 20230328
  7. DESOXIMETASONE [Concomitant]
     Active Substance: DESOXIMETASONE
     Indication: Product used for unknown indication
     Dosage: UNK UNK, UNKNOWN FREQ.
     Route: 065
     Dates: start: 20230228, end: 20230328
  8. AMARYL MEX [Concomitant]
     Indication: Product used for unknown indication
     Route: 065
     Dates: start: 20230228, end: 20230422
  9. IMIDAFENACIN [Concomitant]
     Active Substance: IMIDAFENACIN
     Indication: Product used for unknown indication
     Dosage: 0.1 MG, UNKNOWN FREQ.
     Route: 065
     Dates: start: 20230208, end: 20230326
  10. Esomezol dr [Concomitant]
     Indication: Product used for unknown indication
     Dosage: UNK UNK, UNKNOWN FREQ.
     Route: 065
     Dates: start: 20230320, end: 20230328
  11. POLYBUTINE [Concomitant]
     Indication: Product used for unknown indication
     Route: 065
     Dates: start: 20230320, end: 20230328
  12. MAGNESIUM HYDROXIDE [Concomitant]
     Active Substance: MAGNESIUM HYDROXIDE
     Indication: Product used for unknown indication
     Dosage: UNK UNK, UNKNOWN FREQ.
     Route: 065
     Dates: start: 20230327, end: 20230328
  13. SILCON [Concomitant]
     Indication: Product used for unknown indication
     Dosage: UNK UNK, UNKNOWN FREQ.
     Route: 065
     Dates: start: 20230327, end: 20230328
  14. DULCOLAX NOS [Concomitant]
     Active Substance: BISACODYL OR DOCUSATE SODIUM
     Indication: Product used for unknown indication
     Dosage: UNK UNK, UNKNOWN FREQ.
     Route: 065
     Dates: start: 20230327, end: 20230328

REACTIONS (1)
  - Hepatitis [Recovered/Resolved]

NARRATIVE: CASE EVENT DATE: 20230329
